FAERS Safety Report 24272974 (Version 1)
Quarter: 2024Q3

REPORT INFORMATION
  Report Type: Spontaneous
  Country: US (occurrence: US)
  Receive Date: 20240902
  Receipt Date: 20240902
  Transmission Date: 20241017
  Serious: No
  Sender: CIPLA
  Company Number: US-CIPLA LTD.-2024US06602

PATIENT

DRUGS (4)
  1. ATAZANAVIR [Suspect]
     Active Substance: ATAZANAVIR
     Indication: Antiretroviral therapy
     Dosage: UNK, TOTAL DAILY DOSE OF 300 (UNSPECIFIED UNITS) (COURSE 1)
     Route: 048
     Dates: start: 2022, end: 2022
  2. EMTRICITABINE\TENOFOVIR [Suspect]
     Active Substance: EMTRICITABINE\TENOFOVIR
     Indication: Antiretroviral therapy
     Dosage: UNK, TOTAL DAILY DOSE OF 500 (UNSPECIFIED UNITS) (COURSE 1)
     Route: 048
     Dates: start: 2022, end: 2022
  3. RITONAVIR [Suspect]
     Active Substance: RITONAVIR
     Indication: Antiretroviral therapy
     Dosage: UNK, TOTAL DAILY DOSE OF 100 (UNSPECIFIED UNITS) (COURSE 1)
     Route: 048
     Dates: start: 2022, end: 2022
  4. BICTEGRAVIR\EMTRICITABINE\TENOFOVIR ALAFENAMIDE [Suspect]
     Active Substance: BICTEGRAVIR\EMTRICITABINE\TENOFOVIR ALAFENAMIDE
     Indication: Antiretroviral therapy
     Dosage: UNK, TOTAL DAILY DOSE OF 275 (UNSPECIFIED UNITS) (COURSE 1)
     Route: 048
     Dates: start: 2022

REACTIONS (2)
  - Exposure during pregnancy [Unknown]
  - No adverse event [Unknown]

NARRATIVE: CASE EVENT DATE: 20220101
